FAERS Safety Report 7471561-3 (Version None)
Quarter: 2011Q2

REPORT INFORMATION
  Report Type: 
  Country: None (occurrence: None)
  Receive Date: 20110511
  Receipt Date: 20110328
  Transmission Date: 20111010
  Serious: Yes (Hospitalization, Other)
  Sender: FDA-Public Use
  Company Number: US-BAYER-201036492NA

PATIENT
  Age: 32 Year
  Sex: Female
  Weight: 49.887 kg

DRUGS (4)
  1. YASMIN [Suspect]
     Indication: CONTRACEPTION
     Dosage: UNK
     Dates: start: 20060101, end: 20070101
  2. METHYLPREDNISOLONE ACETATE [Concomitant]
     Dosage: 4 MG, UNK
  3. IBUPROFEN [Concomitant]
     Dosage: 800 MG, PRN
  4. IBUPROFEN (ADVIL) [Concomitant]
     Dosage: UNK UNK, PRN

REACTIONS (5)
  - OEDEMA PERIPHERAL [None]
  - JUGULAR VEIN THROMBOSIS [None]
  - SUBCLAVIAN VEIN THROMBOSIS [None]
  - DEEP VEIN THROMBOSIS [None]
  - AXILLARY VEIN THROMBOSIS [None]
